FAERS Safety Report 8699980 (Version 5)
Quarter: 2014Q3

REPORT INFORMATION
  Report Type: Report from Study
  Country: IN (occurrence: IN)
  Receive Date: 20120802
  Receipt Date: 20140806
  Transmission Date: 20150326
  Serious: Yes (Death)
  Sender: FDA-Public Use
  Company Number: PHHO2012IN009718

PATIENT

DRUGS (10)
  1. CARVEDILOL. [Concomitant]
     Active Substance: CARVEDILOL
     Indication: CARDIOVASCULAR DISORDER
     Dosage: 10 OD
     Dates: start: 20110502
  2. GLIMEPIRIDE W/METFORMIN [Concomitant]
     Indication: DIABETES MELLITUS
     Dosage: 2 OD
     Dates: start: 20110502, end: 20120521
  3. DIGOXIN. [Suspect]
     Active Substance: DIGOXIN
     Dosage: UNK
     Dates: start: 20110502
  4. LCZ696 [Suspect]
     Active Substance: INVESTIGATIONAL PRODUCT
     Dosage: 200 MG, BID
     Route: 048
     Dates: start: 20120327
  5. ASPIRIN. [Concomitant]
     Active Substance: ASPIRIN
     Indication: CARDIOVASCULAR DISORDER
     Dosage: 75 MG, QD
     Dates: start: 20110903, end: 20120521
  6. DYTOR [Concomitant]
     Indication: DIURETIC THERAPY
  7. DYTOR [Concomitant]
     Indication: CARDIAC FAILURE
     Dosage: 20 MG, 1/2 OD
     Dates: start: 20110327, end: 20120521
  8. LANOXIN [Concomitant]
     Active Substance: DIGOXIN
     Indication: CARDIAC FAILURE
     Dosage: 0.25 MG, QD
     Dates: start: 20110502, end: 20120521
  9. CARDIOVAS [Concomitant]
     Active Substance: ISOSORBIDE MONONITRATE
     Indication: CARDIOVASCULAR DISORDER
     Dosage: 10 MG, QD
     Dates: start: 20110502, end: 20120521
  10. LCZ696 [Suspect]
     Active Substance: INVESTIGATIONAL PRODUCT
     Indication: CARDIAC FAILURE CHRONIC
     Dosage: 200 MG, BID
     Route: 048
     Dates: start: 20111123, end: 20120521

REACTIONS (3)
  - Nausea [Fatal]
  - Vomiting [Fatal]
  - Jaundice [Fatal]

NARRATIVE: CASE EVENT DATE: 20120519
